FAERS Safety Report 5895484-6 (Version None)
Quarter: 2008Q3

REPORT INFORMATION
  Report Type: 
  Country: None (occurrence: None)
  Receive Date: 20080924
  Receipt Date: 20080911
  Transmission Date: 20090109
  Serious: Yes (Hospitalization)
  Sender: FDA-Public Use
  Company Number: FR-AVENTIS-200613829FR

PATIENT
  Age: 83 Year
  Sex: Female
  Weight: 55 kg

DRUGS (5)
  1. LASIX [Suspect]
     Route: 048
  2. ALDACTONE [Suspect]
     Route: 048
  3. RENITEC                            /00574901/ [Suspect]
     Route: 048
  4. LEVOTHYROX [Concomitant]
     Route: 048
  5. DIFFU K [Concomitant]
     Route: 048

REACTIONS (3)
  - DRUG INTERACTION [None]
  - HYPERKALAEMIA [None]
  - RENAL FAILURE ACUTE [None]
